FAERS Safety Report 9224562 (Version 1)
Quarter: 2013Q2

REPORT INFORMATION
  Report Type: Spontaneous
  Country: US (occurrence: None)
  Receive Date: 20130411
  Receipt Date: 20130411
  Transmission Date: 20140414
  Serious: Yes (Hospitalization)
  Sender: FDA-Public Use
  Company Number: None

PATIENT
  Age: 83 Year
  Sex: Female

DRUGS (13)
  1. WARFARIN [Suspect]
     Indication: DEEP VEIN THROMBOSIS
     Dosage: 6MG  DAILY  PO?CHRONIC WITH RECENT INCREASE
     Route: 048
  2. WARFARIN [Suspect]
     Indication: PULMONARY EMBOLISM
     Dosage: 6MG  DAILY  PO?CHRONIC WITH RECENT INCREASE
     Route: 048
  3. LOVENOX [Suspect]
     Indication: DEEP VEIN THROMBOSIS
     Dosage: 80MG  DAILY  SQ?RECENT AS BRIDGE
     Route: 058
  4. LOVENOX [Suspect]
     Indication: PULMONARY EMBOLISM
     Dosage: 80MG  DAILY  SQ?RECENT AS BRIDGE
     Route: 058
  5. DOCUSATE [Concomitant]
  6. AMLODIPINE [Concomitant]
  7. CALCITROL [Concomitant]
  8. HYDRALAZINE [Concomitant]
  9. NOVOLOG [Concomitant]
  10. DAPTOMYCIN [Concomitant]
  11. SYNTHROID [Concomitant]
  12. TRAMADOL [Concomitant]
  13. PREDNISONE [Concomitant]

REACTIONS (5)
  - Nausea [None]
  - Vomiting [None]
  - Haematemesis [None]
  - Endocarditis [None]
  - Abdominal pain [None]
